FAERS Safety Report 8163655-4 (Version None)
Quarter: 2012Q1

REPORT INFORMATION
  Report Type: 
  Country: None (occurrence: None)
  Receive Date: 20120224
  Receipt Date: 20120210
  Transmission Date: 20120608
  Serious: Yes (Other)
  Sender: FDA-Public Use
  Company Number: US-UCBSA-051358

PATIENT
  Sex: Female

DRUGS (3)
  1. HEROIN [Suspect]
  2. SUBOXONE [Suspect]
  3. LORTAB [Suspect]
     Indication: BRAIN NEOPLASM

REACTIONS (3)
  - DRUG INEFFECTIVE [None]
  - CAESAREAN SECTION [None]
  - PREGNANCY [None]
